FAERS Safety Report 7575349-4 (Version None)
Quarter: 2011Q2

REPORT INFORMATION
  Report Type: 
  Country: None (occurrence: None)
  Receive Date: 20110627
  Receipt Date: 20110621
  Transmission Date: 20111010
  Serious: Yes (Other)
  Sender: FDA-Public Use
  Company Number: DE-PFIZER INC-2011127184

PATIENT
  Age: 14 Year
  Sex: Male
  Weight: 65 kg

DRUGS (2)
  1. METHYLPHENIDATE [Concomitant]
     Indication: ATTENTION DEFICIT/HYPERACTIVITY DISORDER
     Dosage: 50 MG, 1X/DAY
     Route: 048
     Dates: start: 20070101
  2. ZIPRASIDONE HYDROCHLORIDE [Suspect]
     Indication: IMPULSE-CONTROL DISORDER
     Dosage: 40 MG, 1X/DAY
     Route: 048
     Dates: start: 20090601

REACTIONS (3)
  - GLOMERULAR FILTRATION RATE INCREASED [None]
  - HYPERKALAEMIA [None]
  - FALSE POSITIVE INVESTIGATION RESULT [None]
